FAERS Safety Report 11636755 (Version 1)
Quarter: 2015Q4

REPORT INFORMATION
  Report Type: Spontaneous
  Country: CA (occurrence: CA)
  Receive Date: 20151016
  Receipt Date: 20151016
  Transmission Date: 20160304
  Serious: Yes (Life-Threatening, Hospitalization, Other)
  Sender: FDA-Public Use
  Company Number: CA-TEVA-600286ACC

PATIENT
  Age: 60 Year
  Sex: Female
  Weight: 66 kg

DRUGS (12)
  1. NOVORAPID [Concomitant]
     Active Substance: INSULIN ASPART
  2. AZITHROMYCIN [Suspect]
     Active Substance: AZITHROMYCIN ANHYDROUS
     Indication: PHARYNGITIS
     Dosage: 250 MILLIGRAM DAILY;
     Route: 048
  3. ZANTAC [Concomitant]
     Active Substance: RANITIDINE HYDROCHLORIDE
  4. CALCIUM [Concomitant]
     Active Substance: CALCIUM
  5. COLACE [Concomitant]
     Active Substance: DOCUSATE SODIUM
  6. PREDNISONE. [Concomitant]
     Active Substance: PREDNISONE
  7. VALSARTAN AND HYDROCHLOROTHIAZIDE [Concomitant]
     Active Substance: HYDROCHLOROTHIAZIDE\VALSARTAN
  8. VITAMIN D [Concomitant]
     Active Substance: CHOLECALCIFEROL
  9. LANTUS [Concomitant]
     Active Substance: INSULIN GLARGINE
     Route: 058
  10. NORVASC TAB 10MG [Concomitant]
  11. TRAVATAN Z [Concomitant]
     Active Substance: TRAVOPROST
     Route: 047
  12. SALBUTAMOL [Concomitant]
     Active Substance: ALBUTEROL

REACTIONS (15)
  - Mucosal erosion [Recovered/Resolved]
  - Euthyroid sick syndrome [Recovered/Resolved]
  - Lip haemorrhage [Recovered/Resolved]
  - Cytomegalovirus infection [Recovered/Resolved]
  - Mouth ulceration [Recovered/Resolved]
  - Acute kidney injury [Recovered/Resolved]
  - Blood thyroid stimulating hormone decreased [Recovered/Resolved]
  - Rash generalised [Recovered/Resolved]
  - Respiratory failure [Recovered/Resolved]
  - Pancytopenia [Recovered/Resolved]
  - Hepatitis cholestatic [Recovered/Resolved]
  - Histiocytosis haematophagic [Recovered/Resolved]
  - Stevens-Johnson syndrome [Recovered/Resolved]
  - Drug reaction with eosinophilia and systemic symptoms [Recovered/Resolved]
  - Infection reactivation [Recovered/Resolved]
